FAERS Safety Report 5833830-X (Version None)
Quarter: 2008Q3

REPORT INFORMATION
  Report Type: 
  Country: None (occurrence: None)
  Receive Date: 20080801
  Receipt Date: 20080801
  Transmission Date: 20090109
  Serious: Yes (Life-Threatening, Hospitalization, Disabling)
  Sender: FDA-Public Use
  Company Number: None

PATIENT
  Age: 40 Year
  Sex: Female
  Weight: 52.1637 kg

DRUGS (1)
  1. TRAMADOL HCL [Suspect]
     Indication: HEADACHE
     Dosage: 2-4 TABLETS 3 TO 4 TIMES A DAY PO
     Route: 048

REACTIONS (6)
  - CONVULSION [None]
  - DRUG WITHDRAWAL SYNDROME [None]
  - HEADACHE [None]
  - HEART RATE INCREASED [None]
  - PALPITATIONS [None]
  - TREMOR [None]
